FAERS Safety Report 4518968-1 (Version None)
Quarter: 2004Q4

REPORT INFORMATION
  Report Type: 
  Country: None (occurrence: None)
  Receive Date: 20041203
  Receipt Date: 20041203
  Transmission Date: 20050328
  Serious: Yes (Hospitalization)
  Sender: FDA-Public Use
  Company Number: None

PATIENT
  Age: 34 Year
  Sex: Male

DRUGS (9)
  1. LIPITOR [Suspect]
     Indication: BLOOD CHOLESTEROL INCREASED
     Dosage: DAILY  ORAL
     Route: 048
  2. RISPERDAL [Suspect]
     Indication: SCHIZOPHRENIA
     Dosage: 6 MG  DAILY ORAL
     Route: 048
  3. METFORMIN HCL [Concomitant]
  4. LISINOPRIL [Concomitant]
  5. NALTREXONE [Concomitant]
  6. ASPIRIN [Concomitant]
  7. MICRONASE [Concomitant]
  8. TRAZODONE HCL [Concomitant]
  9. CLONAZEPAM [Concomitant]

REACTIONS (3)
  - COMPARTMENT SYNDROME [None]
  - NERVE COMPRESSION [None]
  - RHABDOMYOLYSIS [None]
